FAERS Safety Report 13252031 (Version 2)
Quarter: 2017Q1

REPORT INFORMATION
  Report Type: Spontaneous
  Country: RU (occurrence: RU)
  Receive Date: 20170220
  Receipt Date: 20170227
  Transmission Date: 20170428
  Serious: Yes (Hospitalization, Disabling, Other)
  Sender: FDA-Public Use
  Company Number: RU-VIIV HEALTHCARE LIMITED-RU2017GSK022264

PATIENT

DRUGS (1)
  1. RETROVIR [Suspect]
     Active Substance: ZIDOVUDINE
     Indication: PRODUCT USED FOR UNKNOWN INDICATION

REACTIONS (14)
  - Renal tubular necrosis [Unknown]
  - Acute kidney injury [Unknown]
  - Enteritis infectious [Unknown]
  - Dehydration [Unknown]
  - Mucosal dryness [Unknown]
  - Blood creatinine increased [Recovered/Resolved]
  - Transaminases increased [Recovered/Resolved]
  - Incorrect dose administered [Unknown]
  - Blood urea increased [Recovered/Resolved]
  - Tubulointerstitial nephritis [Unknown]
  - Overdose [Recovered/Resolved]
  - Medication error [Unknown]
  - Dry skin [Unknown]
  - Nephropathy [Unknown]
